FAERS Safety Report 5156864-X (Version None)
Quarter: 2006Q4

REPORT INFORMATION
  Report Type: 
  Country: None (occurrence: None)
  Receive Date: 20061115
  Receipt Date: 20061103
  Transmission Date: 20070319
  Serious: Yes (Life-Threatening, Hospitalization)
  Sender: FDA-Public Use
  Company Number: 2006135838

PATIENT
  Age: 43 Year
  Sex: Male

DRUGS (8)
  1. AMLODIPINE [Suspect]
     Dosage: (560 MG)
  2. ASPIRIN [Suspect]
     Dosage: (7.5 GRAM)
  3. FOLIC ACID [Suspect]
     Dosage: 30 TABLETS, ORAL
     Route: 048
  4. ACETAMINOPHEN [Suspect]
     Dosage: (16 GRAM)
  5. CITALOPRAM HYDROBROMIDE [Suspect]
     Dosage: (280 MG)
  6. FLUOXETINE [Suspect]
     Dosage: (600 MG)
  7. ALCOHOL (ETHANOL) [Concomitant]
  8. PERINDOPRIL ERBUMINE [Concomitant]

REACTIONS (2)
  - HYPOTENSION [None]
  - OVERDOSE [None]
